FAERS Safety Report 7759035-3 (Version None)
Quarter: 2011Q3

REPORT INFORMATION
  Report Type: 
  Country: None (occurrence: None)
  Receive Date: 20110919
  Receipt Date: 20110915
  Transmission Date: 20111222
  Serious: Yes (Death, Hospitalization)
  Sender: FDA-Public Use
  Company Number: US-BRISTOL-MYERS SQUIBB COMPANY-15385818

PATIENT
  Age: 26 Year
  Sex: Female

DRUGS (9)
  1. LORAZEPAM [Concomitant]
     Dosage: 1-2 TABS AT BEDTIME
     Route: 048
  2. LIDODERM [Concomitant]
     Dosage: GKM 12JUN2010
     Route: 061
  3. FENTANYL [Concomitant]
     Dosage: GKM 12JUN2010
     Route: 061
  4. VALACYCLOVIR [Concomitant]
     Route: 048
  5. IPILIMUMAB [Suspect]
     Indication: MALIGNANT MELANOMA
     Route: 042
     Dates: start: 20100518, end: 20101103
  6. LOVENOX [Concomitant]
     Dosage: GKM 12JUN10:GKM 12JUN10
     Route: 058
  7. ZOFRAN [Concomitant]
     Route: 048
  8. GABAPENTIN [Concomitant]
     Route: 048
  9. ZOLPIDEM [Concomitant]
     Dosage: CR

REACTIONS (7)
  - ERYTHEMA [None]
  - PYREXIA [None]
  - OEDEMA PERIPHERAL [None]
  - ANAEMIA [None]
  - PAIN IN EXTREMITY [None]
  - NEOPLASM MALIGNANT [None]
  - RASH [None]
